FAERS Safety Report 18556949 (Version 6)
Quarter: 2021Q3

REPORT INFORMATION
  Report Type: Report from Study
  Country: US (occurrence: US)
  Receive Date: 20201129
  Receipt Date: 20210721
  Transmission Date: 20211014
  Serious: No
  Sender: FDA-Public Use
  Company Number: NVSC2020US313538

PATIENT
  Age: 43 Year
  Sex: Female

DRUGS (1)
  1. KESIMPTA [Suspect]
     Active Substance: OFATUMUMAB
     Indication: MULTIPLE SCLEROSIS
     Dosage: UNK
     Route: 058
     Dates: start: 20201112

REACTIONS (8)
  - Weight fluctuation [Unknown]
  - Fatigue [Recovered/Resolved]
  - Fall [Unknown]
  - Chills [Recovered/Resolved]
  - Injection site scar [Recovered/Resolved]
  - Injection site bruising [Recovered/Resolved]
  - Head injury [Unknown]
  - Headache [Recovered/Resolved]

NARRATIVE: CASE EVENT DATE: 20201119
